FAERS Safety Report 14545279 (Version 2)
Quarter: 2018Q1

REPORT INFORMATION
  Report Type: Report from Study
  Country: BR (occurrence: BR)
  Receive Date: 20180218
  Receipt Date: 20180223
  Transmission Date: 20180509
  Serious: Yes (Hospitalization, Other)
  Sender: FDA-Public Use
  Company Number: PHHY2018BR022591

PATIENT
  Sex: Male
  Weight: 65 kg

DRUGS (1)
  1. OMNITROPE [Suspect]
     Active Substance: SOMATROPIN
     Indication: GROWTH FAILURE
     Dosage: QHS (ONEC IN NIGHT)
     Route: 058

REACTIONS (2)
  - Weight decreased [Recovering/Resolving]
  - Pneumonia viral [Recovering/Resolving]
